FAERS Safety Report 4367733-7 (Version None)
Quarter: 2004Q2

REPORT INFORMATION
  Report Type: 
  Country: None (occurrence: None)
  Receive Date: 20040527
  Receipt Date: 20040304
  Transmission Date: 20050107
  Serious: Yes (Other)
  Sender: FDA-Public Use
  Company Number: 361035

PATIENT
  Age: 58 Year
  Sex: Male

DRUGS (1)
  1. LARIAM [Suspect]
     Dosage: ORAL
     Route: 048

REACTIONS (3)
  - ANGER [None]
  - PARANOIA [None]
  - SOCIAL AVOIDANT BEHAVIOUR [None]
